FAERS Safety Report 6996735-7 (Version None)
Quarter: 2010Q3

REPORT INFORMATION
  Report Type: 
  Country: None (occurrence: None)
  Receive Date: 20100918
  Receipt Date: 20091005
  Transmission Date: 20110219
  Serious: No
  Sender: FDA-Public Use
  Company Number: US-WYE-H09919709

PATIENT
  Sex: Female
  Weight: 98.06 kg

DRUGS (10)
  1. PRISTIQ [Suspect]
     Indication: ANXIETY
     Route: 048
     Dates: start: 20090620
  2. CELEBREX [Concomitant]
  3. DICYCLOVERINE HYDROCHLORIDE [Concomitant]
  4. CALCIUM [Concomitant]
  5. DETROL [Concomitant]
  6. CETIRIZINE HCL [Concomitant]
  7. ESTRACE [Concomitant]
  8. MULTI-VITAMINS [Concomitant]
  9. SIMVASTATIN [Concomitant]
  10. NEXIUM [Concomitant]

REACTIONS (3)
  - NAUSEA [None]
  - PARAESTHESIA [None]
  - SOMNOLENCE [None]
